FAERS Safety Report 10153801 (Version 1)
Quarter: 2014Q2

REPORT INFORMATION
  Report Type: Spontaneous
  Country: US (occurrence: US)
  Receive Date: 20140506
  Receipt Date: 20140506
  Transmission Date: 20141212
  Serious: Yes (Other)
  Sender: FDA-Public Use
  Company Number: US-PAR PHARMACEUTICAL, INC-2014SCPR009029

PATIENT
  Sex: 0

DRUGS (6)
  1. AMILORIDE HCL [Suspect]
     Indication: HYPERTENSION
     Dosage: UNK, UNKNOWN
     Route: 065
  2. CLONIDINE [Suspect]
     Indication: HYPERTENSION
     Dosage: UNK UNK, UNKNOWN
     Route: 065
  3. CLONIDINE [Suspect]
     Dosage: 0.1 MG, UNKNOWN
     Route: 065
  4. HYDRALAZINE HCL [Suspect]
     Indication: HYPERTENSION
     Dosage: 75 MG, DAILY
     Route: 065
  5. HYDRALAZINE HCL [Suspect]
     Dosage: 6.25 MG, TID
     Route: 065
  6. PLAVIX [Concomitant]
     Indication: PRODUCT USED FOR UNKNOWN INDICATION
     Dosage: UNK, UNKNOWN
     Route: 065

REACTIONS (3)
  - Blood pressure systolic increased [Unknown]
  - Drug ineffective [Unknown]
  - Product quality issue [Unknown]
